FAERS Safety Report 18119589 (Version 1)
Quarter: 2020Q3

REPORT INFORMATION
  Report Type: Spontaneous
  Country: NL (occurrence: NL)
  Receive Date: 20200806
  Receipt Date: 20200806
  Transmission Date: 20201103
  Serious: Yes (Disabling, Other)
  Sender: FDA-Public Use
  Company Number: NL-MYLANLABS-2020M1069134

PATIENT
  Age: 13 Year
  Sex: Female

DRUGS (4)
  1. CASPOFUNGIN [Suspect]
     Active Substance: CASPOFUNGIN
     Indication: BRONCHOPULMONARY ASPERGILLOSIS
     Dosage: 1 MILLIGRAM, QD (1 MILLIGRAM, QD. FROM DAY 13 OF INITIAL TREATMENT)
  2. CASPOFUNGIN [Suspect]
     Active Substance: CASPOFUNGIN
     Dosage: 3 MILLIGRAM, QW (1 MILLIGRAM, TIW)
  3. CASPOFUNGIN [Suspect]
     Active Substance: CASPOFUNGIN
     Indication: CEREBRAL ASPERGILLOSIS
     Dosage: 1.5 MILLIGRAM, QW (0.5 MILLIGRAM, TIW)
  4. CASPOFUNGIN [Suspect]
     Active Substance: CASPOFUNGIN
     Dosage: 70 MILLIGRAM, QD (70 MILLIGRAM, QD, FROM DAY 10 OF INITIAL TREATMENT, UNTIL DAY 201)

REACTIONS (5)
  - Frontotemporal dementia [Unknown]
  - Headache [Recovered/Resolved]
  - Product use issue [Unknown]
  - Muscle spasticity [Unknown]
  - Epilepsy [Unknown]
